FAERS Safety Report 17671396 (Version 1)
Quarter: 2020Q2

REPORT INFORMATION
  Report Type: Spontaneous
  Country: ES (occurrence: ES)
  Receive Date: 20200415
  Receipt Date: 20200415
  Transmission Date: 20200713
  Serious: Yes (Life-Threatening)
  Sender: FDA-Public Use
  Company Number: ES-TEVA-2020-ES-1223055

PATIENT
  Age: 72 Year
  Sex: Male

DRUGS (3)
  1. AMPICILINA (1006A) [Suspect]
     Active Substance: AMPICILLIN
     Indication: BILIARY TRACT INFECTION
     Dosage: 2G/4H
     Route: 042
     Dates: start: 20190926, end: 20191001
  2. MEROPENEM (7155A) [Suspect]
     Active Substance: MEROPENEM
     Indication: BILIARY TRACT INFECTION
     Dosage: 1G/8H
     Route: 042
     Dates: start: 20190926, end: 20191007
  3. LINEZOLID (1279A) [Suspect]
     Active Substance: LINEZOLID
     Indication: BILIARY TRACT INFECTION
     Dosage: 600MG/12H
     Route: 042
     Dates: start: 20190926, end: 20191001

REACTIONS (1)
  - Pancytopenia [Recovering/Resolving]

NARRATIVE: CASE EVENT DATE: 20190929
